FAERS Safety Report 15545678 (Version 1)
Quarter: 2018Q4

REPORT INFORMATION
  Report Type: Spontaneous
  Country: US (occurrence: US)
  Receive Date: 20181024
  Receipt Date: 20181024
  Transmission Date: 20190205
  Serious: No
  Sender: FDA-Public Use
  Company Number: US-BIOCON LIMITED-2056935

PATIENT

DRUGS (1)
  1. ROSUVASTATIN CALCIUM. [Suspect]
     Active Substance: ROSUVASTATIN CALCIUM
     Route: 048

REACTIONS (3)
  - Product container seal issue [Not Recovered/Not Resolved]
  - Skin laceration [Not Recovered/Not Resolved]
  - Haemorrhage [Not Recovered/Not Resolved]
